FAERS Safety Report 7394196-X (Version None)
Quarter: 2011Q1

REPORT INFORMATION
  Report Type: 
  Country: None (occurrence: None)
  Receive Date: 20110311
  Receipt Date: 20110311
  Transmission Date: 20110831
  Serious: Yes (Other)
  Sender: FDA-Public Use
  Company Number: DSA_45221_2011

PATIENT
  Age: 72 Year
  Sex: Male

DRUGS (3)
  1. BUPROPION (BUPROPION) [Suspect]
     Indication: DEPRESSIVE SYMPTOM
     Dosage: (^UP TO 300MG^,
  2. TRAZODONE (TRAZODONE) [Suspect]
     Indication: DEPRESSIVE SYMPTOM
     Dosage: (^UP TO 300^,
  3. LITHIUM (LITHIUM SALT) [Suspect]
     Indication: DEPRESSIVE SYMPTOM
     Dosage: (DF)

REACTIONS (9)
  - ATAXIA [None]
  - DELIRIUM [None]
  - METABOLIC ENCEPHALOPATHY [None]
  - ALTERED STATE OF CONSCIOUSNESS [None]
  - HALLUCINATION, VISUAL [None]
  - NEUROTOXICITY [None]
  - WEIGHT INCREASED [None]
  - BRADYPHRENIA [None]
  - TREMOR [None]
